FAERS Safety Report 7142811-8 (Version None)
Quarter: 2010Q4

REPORT INFORMATION
  Report Type: 
  Country: None (occurrence: None)
  Receive Date: 20101207
  Receipt Date: 20101115
  Transmission Date: 20110411
  Serious: Yes (Life-Threatening, Hospitalization)
  Sender: FDA-Public Use
  Company Number: DE-PFIZER INC-2010147870

PATIENT
  Age: 29 Year
  Sex: Male
  Weight: 85.7 kg

DRUGS (4)
  1. IBUPROFEN [Suspect]
     Dosage: 600 MG, 3X/DAY
     Route: 048
     Dates: start: 20080912, end: 20080920
  2. REBETOL [Concomitant]
     Indication: HEPATITIS C
     Dosage: 1000 MG, UNK
     Route: 048
     Dates: start: 20080401
  3. PEG-INTRON [Concomitant]
     Indication: HEPATITIS C
     Dosage: 80 UG, UNK
     Route: 058
     Dates: start: 20080401, end: 20081003
  4. KOGENATE [Concomitant]
     Dosage: 2000 IU, UNK
     Route: 042

REACTIONS (3)
  - CIRCULATORY COLLAPSE [None]
  - GASTROINTESTINAL HAEMORRHAGE [None]
  - SHOCK HAEMORRHAGIC [None]
